FAERS Safety Report 5871717-7 (Version None)
Quarter: 2008Q3

REPORT INFORMATION
  Report Type: 
  Country: None (occurrence: None)
  Receive Date: 20080902
  Receipt Date: 20080103
  Transmission Date: 20090109
  Serious: Yes (Hospitalization)
  Sender: FDA-Public Use
  Company Number: 2008AL009332

PATIENT
  Age: 62 Year
  Sex: Female

DRUGS (3)
  1. METFORMIN HYDROCHLORIDE [Suspect]
     Indication: AORTIC DISORDER
     Dosage: 500 MG;
  2. ZESTRIL [Concomitant]
  3. WARFARIN SODIUM [Concomitant]

REACTIONS (8)
  - BLOOD PRESSURE INCREASED [None]
  - DIARRHOEA [None]
  - DIZZINESS [None]
  - GAIT DISTURBANCE [None]
  - MIGRAINE [None]
  - MUSCLE SPASMS [None]
  - PHOTOPSIA [None]
  - VISUAL IMPAIRMENT [None]
